FAERS Safety Report 6102536-4 (Version None)
Quarter: 2009Q1

REPORT INFORMATION
  Report Type: 
  Country: None (occurrence: None)
  Receive Date: 20090304
  Receipt Date: 20080806
  Transmission Date: 20090719
  Serious: No
  Sender: FDA-Public Use
  Company Number: A0741366A

PATIENT
  Age: 55 Year
  Sex: Male

DRUGS (5)
  1. REQUIP [Suspect]
     Indication: PARKINSON'S DISEASE
     Dosage: 3MG FOUR TIMES PER DAY
     Route: 048
     Dates: start: 20060801
  2. SINEMET [Concomitant]
  3. COMTAN [Concomitant]
  4. SEROQUEL [Concomitant]
  5. CELEXA [Concomitant]

REACTIONS (1)
  - FORMICATION [None]
